FAERS Safety Report 16949764 (Version 1)
Quarter: 2019Q4

REPORT INFORMATION
  Report Type: Spontaneous
  Country: US (occurrence: US)
  Receive Date: 20191023
  Receipt Date: 20191023
  Transmission Date: 20200122
  Serious: No
  Sender: FDA-Public Use
  Company Number: US-APOTEX-2019AP023042

PATIENT
  Age: 69 Year
  Sex: Female

DRUGS (4)
  1. FENTANYL. [Suspect]
     Active Substance: FENTANYL
     Indication: PAIN
     Dosage: 1 DF, TID, (ONE PATCH EVERY 72 HOURLY)
     Route: 062
     Dates: start: 20190917
  2. MEGESTROL ACETATE. [Concomitant]
     Active Substance: MEGESTROL ACETATE
     Indication: INCREASED APPETITE
     Dosage: 2 DF, QD
     Route: 065
     Dates: start: 2019
  3. LEVOTHYROXINE. [Concomitant]
     Active Substance: LEVOTHYROXINE
     Indication: THYROID DISORDER
     Dosage: 25 ?G, QD
     Route: 065
     Dates: start: 2019
  4. ESTRADIOL. [Concomitant]
     Active Substance: ESTRADIOL
     Indication: PRODUCT USED FOR UNKNOWN INDICATION
     Dosage: 1 DF, UNK, (1 PATCH EVERY 7 DAYS0
     Route: 065

REACTIONS (9)
  - Dermatitis contact [Not Recovered/Not Resolved]
  - Product adhesion issue [Unknown]
  - Blood blister [Not Recovered/Not Resolved]
  - Pruritus [Not Recovered/Not Resolved]
  - Product colour issue [Unknown]
  - Physical product label issue [Unknown]
  - Application site pruritus [Not Recovered/Not Resolved]
  - Urticaria [Not Recovered/Not Resolved]
  - Product substitution issue [Not Recovered/Not Resolved]

NARRATIVE: CASE EVENT DATE: 20190917
